FAERS Safety Report 16536557 (Version 2)
Quarter: 2019Q3

REPORT INFORMATION
  Report Type: Spontaneous
  Country: US (occurrence: US)
  Receive Date: 20190706
  Receipt Date: 20190717
  Transmission Date: 20191004
  Serious: No
  Sender: FDA-Public Use
  Company Number: US-009507513-1907USA002495

PATIENT
  Sex: Female

DRUGS (1)
  1. NEXPLANON [Suspect]
     Active Substance: ETONOGESTREL
     Dosage: HER NEXPLANON
     Route: 059

REACTIONS (1)
  - Incorrect product administration duration [Unknown]

NARRATIVE: CASE EVENT DATE: 201906
